FAERS Safety Report 22068670 (Version 1)
Quarter: 2023Q1

REPORT INFORMATION
  Report Type: Spontaneous
  Country: US (occurrence: US)
  Receive Date: 20230307
  Receipt Date: 20230307
  Transmission Date: 20230418
  Serious: Yes (Other)
  Sender: FDA-Public Use
  Company Number: US-ASTELLAS-2023US007306

PATIENT
  Age: 68 Year
  Sex: Female

DRUGS (1)
  1. CRESEMBA [Suspect]
     Active Substance: ISAVUCONAZONIUM SULFATE
     Indication: Aspergillus infection
     Dosage: 372 MG, ONCE DAILY (186MG, 2 CAPSULES DAILY)
     Route: 065
     Dates: end: 202302

REACTIONS (12)
  - Secondary immunodeficiency [Unknown]
  - Foot deformity [Unknown]
  - Skin ulcer [Recovering/Resolving]
  - Peripheral swelling [Recovering/Resolving]
  - Superficial vein prominence [Recovering/Resolving]
  - Pruritus [Unknown]
  - Burning sensation [Recovering/Resolving]
  - Hypersensitivity [Recovering/Resolving]
  - Raynaud^s phenomenon [Unknown]
  - Gait disturbance [Unknown]
  - Erythema [Recovering/Resolving]
  - Skin discolouration [Recovering/Resolving]
